FAERS Safety Report 8123124-4 (Version None)
Quarter: 2012Q1

REPORT INFORMATION
  Report Type: 
  Country: None (occurrence: None)
  Receive Date: 20120206
  Receipt Date: 20110303
  Transmission Date: 20120608
  Serious: Yes (Death, Hospitalization)
  Sender: FDA-Public Use
  Company Number: ACO_21883_2011

PATIENT
  Age: 58 Year
  Sex: Female

DRUGS (5)
  1. ANOTRA *DAKFANORUDUBE( TABLET, 10MG [Suspect]
     Indication: PRODUCT USED FOR UNKNOWN INDICATION
     Dosage: 10 MG, Q 12 HRS, ORAL
     Route: 048
     Dates: start: 20101001, end: 20110101
  2. REBIF [Concomitant]
  3. AFRIN ALLERGY SPRAY /00070001/ (OXYMETAZOLINE) [Concomitant]
  4. BENADRYL [Concomitant]
  5. AEROBID [Concomitant]

REACTIONS (6)
  - CALCULUS BLADDER [None]
  - PYREXIA [None]
  - URINARY TRACT INFECTION [None]
  - LUNG CANCER METASTATIC [None]
  - RESPIRATORY FAILURE [None]
  - CHILLS [None]
